FAERS Safety Report 9320489 (Version 1)
Quarter: 2013Q2

REPORT INFORMATION
  Report Type: Spontaneous
  Country: ES (occurrence: ES)
  Receive Date: 20130530
  Receipt Date: 20130530
  Transmission Date: 20140414
  Serious: Yes (Other)
  Sender: FDA-Public Use
  Company Number: US-MYLANLABS-2013S1010926

PATIENT
  Age: 17 Year
  Sex: Female

DRUGS (1)
  1. RIZATRIPTAN [Suspect]
     Indication: MIGRAINE
     Dosage: SHE TOOK TWO 10MG TABLETS: THE FIRST AT THE BEGINNING OF OCTOBER AND THE SECOND ON DECEMBER 12
     Route: 065

REACTIONS (1)
  - Hepatitis toxic [Recovered/Resolved]
